FAERS Safety Report 8616411 (Version 5)
Quarter: 2012Q4

REPORT INFORMATION
  Report Type: 
  Country: AT (occurrence: AT)
  Receive Date: 20120615
  Receipt Date: 20121011
  Transmission Date: 20130627
  Serious: Yes (Hospitalization)
  Sender: FDA-Public Use
  Company Number: AT-BIOGENIDEC-2012BI020777

PATIENT
  Age: 48 Year
  Sex: Male

DRUGS (6)
  1. TYSABRI [Suspect]
     Indication: RELAPSING-REMITTING MULTIPLE SCLEROSIS
     Route: 042
     Dates: start: 20111130, end: 201204
  2. TYSABRI [Suspect]
     Indication: RELAPSING-REMITTING MULTIPLE SCLEROSIS
     Route: 042
     Dates: start: 20120606
  3. TAMSULOSIN [Concomitant]
  4. EZETROL [Concomitant]
  5. NEUPRO [Concomitant]
  6. MAGNESIUM [Concomitant]

REACTIONS (1)
  - Eosinophilia [Not Recovered/Not Resolved]
